FAERS Safety Report 6087647-4 (Version None)
Quarter: 2009Q1

REPORT INFORMATION
  Report Type: 
  Country: None (occurrence: None)
  Receive Date: 20090223
  Receipt Date: 20090211
  Transmission Date: 20090719
  Serious: Yes (Hospitalization)
  Sender: FDA-Public Use
  Company Number: IT-PFIZER INC-2009157231

PATIENT

DRUGS (1)
  1. SALAZOPYRINE EN [Suspect]
     Indication: COLITIS ULCERATIVE
     Dosage: 3000 MG, 1X/DAY
     Route: 048
     Dates: start: 20080925, end: 20080101

REACTIONS (1)
  - DRUG RASH WITH EOSINOPHILIA AND SYSTEMIC SYMPTOMS [None]
